FAERS Safety Report 21163392 (Version 2)
Quarter: 2022Q3

REPORT INFORMATION
  Report Type: Other
  Country: US (occurrence: None)
  Receive Date: 20220802
  Receipt Date: 20220808
  Transmission Date: 20221027
  Serious: No
  Sender: FDA-Public Use
  Company Number: US-ROCHE-3145880

PATIENT
  Age: 57 Year
  Sex: Female
  Weight: 56.750 kg

DRUGS (4)
  1. OCREVUS [Suspect]
     Active Substance: OCRELIZUMAB
     Indication: Relapsing-remitting multiple sclerosis
     Dosage: DATE OF TREATMENT: 05/AUG/2021, 21/JUL/2022
     Route: 042
     Dates: start: 202101
  2. ZARXIO [Suspect]
     Active Substance: FILGRASTIM-SNDZ
     Indication: White blood cell disorder
     Route: 065
  3. VALIUM [Suspect]
     Active Substance: DIAZEPAM
     Indication: Product used for unknown indication
     Route: 065
  4. LORATADINE [Concomitant]
     Active Substance: LORATADINE

REACTIONS (7)
  - COVID-19 [Recovered/Resolved]
  - Fatigue [Not Recovered/Not Resolved]
  - Weight fluctuation [Unknown]
  - Pain [Unknown]
  - Arthralgia [Unknown]
  - White blood cell count abnormal [Not Recovered/Not Resolved]
  - Drug hypersensitivity [Unknown]

NARRATIVE: CASE EVENT DATE: 20220708
